FAERS Safety Report 10913645 (Version 1)
Quarter: 2015Q1

REPORT INFORMATION
  Report Type: Spontaneous
  Country: FR (occurrence: FR)
  Receive Date: 20150313
  Receipt Date: 20150313
  Transmission Date: 20150721
  Serious: Yes (Hospitalization, Other)
  Sender: FDA-Public Use
  Company Number: FR-PFIZER INC-2014115815

PATIENT
  Age: 33 Year
  Sex: Female

DRUGS (7)
  1. AMLOR [Suspect]
     Active Substance: AMLODIPINE BESYLATE
     Dosage: 10 MG
     Route: 048
     Dates: start: 20140318, end: 20140326
  2. TARDYFERON [Suspect]
     Active Substance: FERROUS SULFATE\FOLIC ACID
     Dosage: 80 MG
     Route: 048
     Dates: start: 20140214, end: 20140326
  3. LOXEN [Suspect]
     Active Substance: NICARDIPINE HYDROCHLORIDE
     Dosage: 50 MG
     Route: 048
     Dates: start: 20140211, end: 20140317
  4. AERIUS [Suspect]
     Active Substance: DESLORATADINE
     Route: 048
  5. PARACETAMOL [Suspect]
     Active Substance: ACETAMINOPHEN
     Dosage: UNK
     Route: 048
     Dates: start: 20140209, end: 20140318
  6. LOXEN [Suspect]
     Active Substance: NICARDIPINE HYDROCHLORIDE
     Dosage: 50 MG
     Route: 048
     Dates: start: 20140121, end: 20140209
  7. AMLOR [Suspect]
     Active Substance: AMLODIPINE BESYLATE
     Dosage: 10 MG
     Route: 048
     Dates: start: 20140209, end: 20140211

REACTIONS (2)
  - Cryoglobulinaemia [Unknown]
  - Hypersensitivity vasculitis [Recovered/Resolved]

NARRATIVE: CASE EVENT DATE: 20140318
